FAERS Safety Report 7679597-4 (Version None)
Quarter: 2011Q3

REPORT INFORMATION
  Report Type: 
  Country: None (occurrence: None)
  Receive Date: 20110809
  Receipt Date: 20110729
  Transmission Date: 20111222
  Serious: Yes (Hospitalization)
  Sender: FDA-Public Use
  Company Number: 2011S1000887

PATIENT
  Age: 66 Year
  Sex: Female

DRUGS (7)
  1. AMLODIPINE BESYLATE [Concomitant]
  2. ALSETIN [Concomitant]
  3. BONALON /01220302/ [Concomitant]
  4. ELDECALCITOL [Concomitant]
  5. LIVALO [Suspect]
     Indication: HYPERLIPIDAEMIA
     Dosage: 2 MG;1X;PO
     Route: 048
     Dates: start: 20110511, end: 20110611
  6. HERBAL PREPARATION [Concomitant]
  7. CANDESARTAN CIREXETIL [Concomitant]

REACTIONS (2)
  - HEPATITIS [None]
  - NASOPHARYNGITIS [None]
